FAERS Safety Report 4485847-8 (Version None)
Quarter: 2004Q3

REPORT INFORMATION
  Report Type: 
  Country: None (occurrence: None)
  Receive Date: 20040921
  Receipt Date: 20030806
  Transmission Date: 20050211
  Serious: Yes (Other)
  Sender: FDA-Public Use
  Company Number: 163-20785-03100066

PATIENT
  Age: 49 Year
  Sex: Male
  Weight: 53.978 kg

DRUGS (5)
  1. THALOMID [Suspect]
     Indication: MULTIPLE MYELOMA
     Dosage: 250 MG, QD, ORAL
     Route: 048
     Dates: start: 20011005, end: 20020209
  2. CISPLATIN [Suspect]
     Indication: MULTIPLE MYELOMA
     Dosage: 15 MG/M2, DAYS 1-4, INTRAVENOUS
     Route: 042
  3. CYCLOPHOSPHAMIDE [Suspect]
     Indication: MULTIPLE MYELOMA
     Dosage: 400 MG/M2, DAILY 1-4, INTRAVENOUS
     Route: 042
  4. VP-16-213 (INJECTION) [Suspect]
     Indication: MULTIPLE MYELOMA
     Dosage: 40 MG/M2, DAYS 1-4, INTRAVENOUS
     Route: 042
  5. G-CSF (GRANULOCYTE COLONY STIMULATING) [Suspect]
     Indication: MULTIPLE MYELOMA
     Dosage: 300 MCG/D, SC UNTIL DAY 5
     Route: 058

REACTIONS (13)
  - BLOOD CREATININE INCREASED [None]
  - COUGH [None]
  - DYSPNOEA [None]
  - HAEMOGLOBIN DECREASED [None]
  - HAEMOPTYSIS [None]
  - LEUKOPENIA [None]
  - LUNG INFILTRATION [None]
  - NEUTROPENIA [None]
  - PLEURITIC PAIN [None]
  - PYREXIA [None]
  - RENAL FAILURE ACUTE [None]
  - SEPSIS [None]
  - THINKING ABNORMAL [None]
